FAERS Safety Report 4862489-3 (Version None)
Quarter: 2005Q4

REPORT INFORMATION
  Report Type: 
  Country: None (occurrence: None)
  Receive Date: 20051221
  Receipt Date: 20051212
  Transmission Date: 20060501
  Serious: Yes (Other)
  Sender: FDA-Public Use
  Company Number: 2005AC01957

PATIENT
  Age: 68 Year
  Sex: Female

DRUGS (1)
  1. MEROPENEM [Suspect]
     Route: 042

REACTIONS (3)
  - PANCREATIC NECROSIS [None]
  - SEPSIS [None]
  - SYSTEMIC INFLAMMATORY RESPONSE SYNDROME [None]
